FAERS Safety Report 16999261 (Version 1)
Quarter: 2019Q4

REPORT INFORMATION
  Report Type: Spontaneous
  Country: US (occurrence: US)
  Receive Date: 20191105
  Receipt Date: 20191105
  Transmission Date: 20200122
  Serious: No
  Sender: FDA-Public Use
  Company Number: US-RADIUS HEALTH INC.-2019US003965

PATIENT
  Sex: Female

DRUGS (2)
  1. TYMLOS [Suspect]
     Active Substance: ABALOPARATIDE
     Indication: OSTEOPOROSIS POSTMENOPAUSAL
     Dosage: 80 MCG, DAILY
     Route: 058
     Dates: start: 201909
  2. TYMLOS [Suspect]
     Active Substance: ABALOPARATIDE
     Indication: OSTEOPOROSIS

REACTIONS (8)
  - Contusion [Unknown]
  - Fatigue [Unknown]
  - Wrong technique in product usage process [Unknown]
  - Vertigo [Unknown]
  - Headache [Unknown]
  - Abdominal discomfort [Unknown]
  - Heart rate increased [Unknown]
  - Depression [Unknown]
